FAERS Safety Report 15109159 (Version 2)
Quarter: 2019Q2

REPORT INFORMATION
  Report Type: Report from Study
  Country: BE (occurrence: BE)
  Receive Date: 20180705
  Receipt Date: 20190620
  Transmission Date: 20190711
  Serious: Yes (Hospitalization, Other)
  Sender: FDA-Public Use
  Company Number: BE-ROCHE-2146211

PATIENT
  Sex: Female

DRUGS (2)
  1. OCREVUS [Suspect]
     Active Substance: OCRELIZUMAB
     Indication: PRODUCT USED FOR UNKNOWN INDICATION
     Dosage: UNK?START DATE: 29/MAY/2018
     Route: 065
  2. ALEMTUZUMAB [Suspect]
     Active Substance: ALEMTUZUMAB
     Indication: PRODUCT USED FOR UNKNOWN INDICATION
     Dosage: MOST RECENT DOSE WAS RECEVIED ON 20/NOV/2017
     Route: 041

REACTIONS (11)
  - Fall [Unknown]
  - Fatigue [Unknown]
  - Musculoskeletal disorder [Recovered/Resolved]
  - Gait disturbance [Unknown]
  - Cystitis [Recovered/Resolved]
  - Disease recurrence [Recovered/Resolved]
  - Dizziness [Recovering/Resolving]
  - Insomnia [Unknown]
  - Suture insertion [Recovered/Resolved]
  - Upper limb fracture [Unknown]
  - Hemiparesis [Recovered/Resolved]

NARRATIVE: CASE EVENT DATE: 2017
